FAERS Safety Report 7423672-6 (Version None)
Quarter: 2011Q2

REPORT INFORMATION
  Report Type: 
  Country: None (occurrence: None)
  Receive Date: 20110411
  Receipt Date: 20110330
  Transmission Date: 20111010
  Serious: Yes (Hospitalization)
  Sender: FDA-Public Use
  Company Number: 1000019812

PATIENT
  Age: 67 Year
  Sex: Female

DRUGS (1)
  1. MILNACIPRAN (MILNACIPRAN HYDROCHLORIDE) (TABLETS) [Suspect]
     Dosage: ORAL
     Route: 048
     Dates: start: 20030101, end: 20090101

REACTIONS (1)
  - LIVER DISORDER [None]
